FAERS Safety Report 7249790-3 (Version None)
Quarter: 2011Q1

REPORT INFORMATION
  Report Type: 
  Country: None (occurrence: None)
  Receive Date: 20110128
  Receipt Date: 20100225
  Transmission Date: 20110831
  Serious: No
  Sender: FDA-Public Use
  Company Number: A0852684A

PATIENT
  Age: 47 Year
  Sex: Male

DRUGS (3)
  1. XANAX [Concomitant]
  2. BUPROPION HYDROCHLORIDE [Suspect]
     Indication: MENTAL DISORDER
     Dosage: 300MG PER DAY
     Route: 065
     Dates: start: 20090101
  3. LIPITOR [Concomitant]

REACTIONS (2)
  - MOOD SWINGS [None]
  - CRYING [None]
